FAERS Safety Report 18148846 (Version 1)
Quarter: 2020Q3

REPORT INFORMATION
  Report Type: Spontaneous
  Country: GB (occurrence: GB)
  Receive Date: 20200814
  Receipt Date: 20200814
  Transmission Date: 20201103
  Serious: Yes (Disabling)
  Sender: FDA-Public Use
  Company Number: GB-TEVA-2020-GB-1813675

PATIENT
  Age: 78 Year
  Sex: Female

DRUGS (5)
  1. WARFARIN [Suspect]
     Active Substance: WARFARIN
     Indication: ATRIAL FIBRILLATION
     Dosage: ACCORDING TO INTERNATIONAL NORMALIZED RATIO (INR)
     Route: 048
     Dates: start: 20200512, end: 20200611
  2. LOSARTAN. [Concomitant]
     Active Substance: LOSARTAN
  3. DIGOXIN. [Concomitant]
     Active Substance: DIGOXIN
  4. FUROSEMIDE SODIUM [Concomitant]
     Active Substance: FUROSEMIDE SODIUM
  5. BISOPROLOL [Concomitant]
     Active Substance: BISOPROLOL

REACTIONS (1)
  - Dyspnoea [Recovered/Resolved]

NARRATIVE: CASE EVENT DATE: 20200513
